FAERS Safety Report 4471113-3 (Version None)
Quarter: 2004Q4

REPORT INFORMATION
  Report Type: 
  Country: None (occurrence: None)
  Receive Date: 20041005
  Receipt Date: 20040921
  Transmission Date: 20050328
  Serious: Yes (Other)
  Sender: FDA-Public Use
  Company Number: B0345930A

PATIENT
  Age: 43 Year
  Sex: Female

DRUGS (4)
  1. EPIVIR [Suspect]
  2. STAVUDINE (FORMULATION UNKNOWN) (STAVUDINE) [Suspect]
  3. EFAVIRENZ (FORMULATION UNKNOWN) (EFAVIRENZ) [Suspect]
  4. ANTI-TB MEDICATION [Concomitant]

REACTIONS (6)
  - BRONCHOSCOPY ABNORMAL [None]
  - DYSPNOEA EXERTIONAL [None]
  - GRANULOMA [None]
  - IMMUNE RECONSTITUTION SYNDROME [None]
  - STRIDOR [None]
  - TUBERCULOSIS [None]
